FAERS Safety Report 12585477 (Version 1)
Quarter: 2016Q3

REPORT INFORMATION
  Report Type: Spontaneous
  Country: US (occurrence: US)
  Receive Date: 20160724
  Receipt Date: 20160724
  Transmission Date: 20161109
  Serious: Yes (Life-Threatening, Hospitalization, Other)
  Sender: FDA-Public Use
  Company Number: US-ELI_LILLY_AND_COMPANY-US201607004720

PATIENT
  Age: 61 Year
  Sex: Female

DRUGS (2)
  1. LANTUS [Concomitant]
     Active Substance: INSULIN GLARGINE
     Indication: PRODUCT USED FOR UNKNOWN INDICATION
     Dosage: UNK, UNKNOWN
     Route: 065
  2. HUMALOG [Suspect]
     Active Substance: INSULIN LISPRO
     Indication: TYPE 2 DIABETES MELLITUS
     Dosage: SLIDING SCALE, QID
     Route: 065
     Dates: start: 201601

REACTIONS (9)
  - Pulmonary embolism [Unknown]
  - Drug ineffective [Unknown]
  - Myocardial infarction [Unknown]
  - Hyperkeratosis [Unknown]
  - Blood glucose abnormal [Recovered/Resolved]
  - Localised infection [Unknown]
  - Limb injury [Unknown]
  - Fluid retention [Recovering/Resolving]
  - Dyspnoea [Unknown]

NARRATIVE: CASE EVENT DATE: 201601
